FAERS Safety Report 4622922-9 (Version None)
Quarter: 2005Q1

REPORT INFORMATION
  Report Type: 
  Country: None (occurrence: None)
  Receive Date: 20050329
  Receipt Date: 20020523
  Transmission Date: 20050727
  Serious: No
  Sender: FDA-Public Use
  Company Number: 3739

PATIENT
  Age: 54 Year
  Sex: Male

DRUGS (8)
  1. CYTARABINE [Suspect]
     Indication: LYMPHOMA
     Dosage: 2 G/M2 ONCE
     Route: 042
     Dates: start: 20020518, end: 20020518
  2. CYTARABINE [Suspect]
     Indication: NEOPLASM RECURRENCE
     Dosage: 2 G/M2 ONCE
     Route: 042
     Dates: start: 20020518, end: 20020518
  3. SERTRALINE HCL [Concomitant]
  4. ALLOPURINOL [Concomitant]
  5. CISPLATIN [Concomitant]
  6. RANITIDINE [Concomitant]
  7. GRANISETRON [Concomitant]
  8. CYCLIZINE [Concomitant]

REACTIONS (2)
  - NEUROTOXICITY [None]
  - TREMOR [None]
